FAERS Safety Report 7672051-5 (Version None)
Quarter: 2011Q3

REPORT INFORMATION
  Report Type: 
  Country: None (occurrence: None)
  Receive Date: 20110809
  Receipt Date: 20110726
  Transmission Date: 20111222
  Serious: Yes (Hospitalization, Other)
  Sender: FDA-Public Use
  Company Number: PHHY2011US45940

PATIENT
  Sex: Male
  Weight: 90 kg

DRUGS (7)
  1. LOTREL [Suspect]
     Dosage: 1 DF, QD
     Route: 048
  2. ALENDRONATE SODIUM [Concomitant]
     Dosage: UNK UKN, QW
  3. LOVAZA [Concomitant]
     Dosage: UNK UKN, UNK
  4. CENTRUM [Concomitant]
     Dosage: UNK UKN, UNK
  5. AMLODIPINE BESYLATE AND BENAZEPRIL HCL [Suspect]
     Dosage: 1 DF, QD
  6. ASPIRIN [Concomitant]
     Dosage: UNK UKN, UNK
  7. CALCIUM CARBONATE [Concomitant]
     Dosage: UNK UKN, UNK

REACTIONS (4)
  - DRUG INEFFECTIVE [None]
  - CEREBROVASCULAR ACCIDENT [None]
  - BLOOD PRESSURE INCREASED [None]
  - DIZZINESS [None]
